FAERS Safety Report 5118415-5 (Version None)
Quarter: 2006Q3

REPORT INFORMATION
  Report Type: 
  Country: None (occurrence: None)
  Receive Date: 20060926
  Receipt Date: 20060919
  Transmission Date: 20061208
  Serious: Yes (Death)
  Sender: FDA-Public Use
  Company Number: 2006US001582

PATIENT
  Sex: Female

DRUGS (1)
  1. VESICARE [Suspect]
     Indication: HYPERTONIC BLADDER
     Dosage: 5 MG UID QD ORAL
     Route: 048
     Dates: start: 20060418, end: 20060531

REACTIONS (4)
  - CONFUSIONAL STATE [None]
  - CYSTITIS [None]
  - DRY MOUTH [None]
  - TREMOR [None]
